FAERS Safety Report 9789911 (Version 1)
Quarter: 2013Q4

REPORT INFORMATION
  Report Type: Spontaneous
  Country: US (occurrence: None)
  Receive Date: 20131230
  Receipt Date: 20131230
  Transmission Date: 20140711
  Serious: No
  Sender: FDA-Public Use
  Company Number: None

PATIENT
  Age: 54 Year
  Sex: Female
  Weight: 81.65 kg

DRUGS (1)
  1. METHYLPHENIDATE HYDROCHLORIDE ER [Suspect]
     Indication: ATTENTION DEFICIT/HYPERACTIVITY DISORDER
     Dosage: 1 PILL ONCE DAILY TAKEN BY MOUTH
     Route: 048
     Dates: start: 20131203, end: 20131217

REACTIONS (8)
  - Product substitution issue [None]
  - Product quality issue [None]
  - Tremor [None]
  - Tremor [None]
  - Anxiety [None]
  - Disturbance in attention [None]
  - Euphoric mood [None]
  - Drug effect decreased [None]
